FAERS Safety Report 9188217 (Version 2)
Quarter: 2013Q2

REPORT INFORMATION
  Report Type: Report from Study
  Country: NL (occurrence: NL)
  Receive Date: 20130325
  Receipt Date: 20130424
  Transmission Date: 20140414
  Serious: Yes (Death, Other)
  Sender: FDA-Public Use
  Company Number: NL-BAXTER-2013BAX010680

PATIENT
  Age: 54 Year
  Sex: Male

DRUGS (3)
  1. GAMMAGARD S/D [Suspect]
     Indication: MULTIPLE SCLEROSIS
     Route: 042
     Dates: start: 20130228, end: 20130228
  2. GAMMAGARD S/D [Suspect]
     Indication: OFF LABEL USE
     Route: 042
     Dates: start: 20130131, end: 20130131
  3. GAMMAGARD S/D [Suspect]
     Route: 042
     Dates: start: 200703, end: 20130228

REACTIONS (2)
  - Death [Fatal]
  - Cardiac arrest [Unknown]
